FAERS Safety Report 13706814 (Version 2)
Quarter: 2017Q4

REPORT INFORMATION
  Report Type: Spontaneous
  Country: US (occurrence: US)
  Receive Date: 20170630
  Receipt Date: 20171123
  Transmission Date: 20180320
  Serious: No
  Sender: FDA-Public Use
  Company Number: US-JNJFOC-20170616745

PATIENT
  Age: 9 Year
  Sex: Male

DRUGS (10)
  1. RISPERDAL [Suspect]
     Active Substance: RISPERIDONE
     Indication: TREMOR
     Route: 048
     Dates: end: 20100729
  2. RISPERIDONE. [Suspect]
     Active Substance: RISPERIDONE
     Indication: TREMOR
     Route: 065
     Dates: start: 20090507, end: 20090830
  3. RISPERIDONE. [Suspect]
     Active Substance: RISPERIDONE
     Indication: TREMOR
     Route: 065
  4. RISPERDAL [Suspect]
     Active Substance: RISPERIDONE
     Indication: TREMOR
     Route: 048
     Dates: start: 20070115, end: 20090311
  5. RISPERIDONE. [Suspect]
     Active Substance: RISPERIDONE
     Indication: TREMOR
     Route: 048
  6. RISPERDAL [Suspect]
     Active Substance: RISPERIDONE
     Indication: TREMOR
     Route: 048
     Dates: start: 20101015
  7. RISPERIDONE. [Suspect]
     Active Substance: RISPERIDONE
     Indication: TREMOR
     Route: 048
     Dates: start: 20101015
  8. RISPERIDONE. [Suspect]
     Active Substance: RISPERIDONE
     Indication: TREMOR
     Route: 065
     Dates: start: 20091202, end: 20100106
  9. RISPERIDONE. [Suspect]
     Active Substance: RISPERIDONE
     Indication: TREMOR
     Route: 048
     Dates: start: 20100210, end: 20100729
  10. RISPERIDONE. [Suspect]
     Active Substance: RISPERIDONE
     Indication: TREMOR
     Route: 048
     Dates: start: 20091008

REACTIONS (4)
  - Emotional disorder [Unknown]
  - Off label use [Unknown]
  - Product use in unapproved indication [Unknown]
  - Gynaecomastia [Unknown]

NARRATIVE: CASE EVENT DATE: 20070115
